FAERS Safety Report 22597302 (Version 1)
Quarter: 2023Q2

REPORT INFORMATION
  Report Type: Spontaneous
  Country: US (occurrence: US)
  Receive Date: 20230614
  Receipt Date: 20230614
  Transmission Date: 20230722
  Serious: Yes (Other)
  Sender: FDA-Public Use
  Company Number: US-002147023-NVSC2021US181415

PATIENT
  Age: 23 Year
  Sex: Female

DRUGS (1)
  1. METOPROLOL [Suspect]
     Active Substance: METOPROLOL
     Indication: Ventricular tachycardia
     Dosage: 25 MG, BID
     Route: 065

REACTIONS (3)
  - Premature delivery [Unknown]
  - Maternal exposure during pregnancy [Unknown]
  - Delivery [Unknown]
